FAERS Safety Report 5193462-6 (Version None)
Quarter: 2006Q4

REPORT INFORMATION
  Report Type: 
  Country: None (occurrence: None)
  Receive Date: 20061228
  Receipt Date: 20060501
  Transmission Date: 20070319
  Serious: No
  Sender: FDA-Public Use
  Company Number: US-GLAXOSMITHKLINE-A0603857A

PATIENT
  Age: 75 Year
  Sex: Male

DRUGS (5)
  1. FLONASE [Suspect]
     Dosage: 1PUFF TWICE PER DAY
     Route: 045
     Dates: start: 20030501, end: 20031101
  2. DIABETES MEDICATION [Concomitant]
  3. LIPITOR [Concomitant]
  4. ZETIA [Concomitant]
  5. ALLERGY MEDICATION [Concomitant]

REACTIONS (1)
  - NASAL DISCOMFORT [None]
